FAERS Safety Report 15292540 (Version 2)
Quarter: 2018Q3

REPORT INFORMATION
  Report Type: Report from Study
  Country: DE (occurrence: DE)
  Receive Date: 20180818
  Receipt Date: 20180828
  Transmission Date: 20181010
  Serious: Yes (Hospitalization)
  Sender: FDA-Public Use
  Company Number: DE-TEVA-2018-DE-942401

PATIENT
  Age: 56 Year
  Sex: Female

DRUGS (9)
  1. MABTHERA [Suspect]
     Active Substance: RITUXIMAB
     Indication: RHEUMATOID ARTHRITIS
     Dosage: LAST DOSE PRIOR TO SAE: 1000 MG ON 14/OCT/2015
     Route: 042
  2. SIMVA [Concomitant]
     Active Substance: SIMVASTATIN
     Route: 065
  3. PREDNISOLON [Concomitant]
     Active Substance: PREDNISOLONE
     Route: 065
  4. FOLIC ACID. [Concomitant]
     Active Substance: FOLIC ACID
     Route: 065
  5. IBUPROFEN. [Concomitant]
     Active Substance: IBUPROFEN
     Route: 065
  6. PANTOZOL [Concomitant]
     Active Substance: PANTOPRAZOLE SODIUM
     Route: 065
  7. CLEXANE [Concomitant]
     Active Substance: ENOXAPARIN SODIUM
     Route: 065
  8. METHOTREXATE. [Suspect]
     Active Substance: METHOTREXATE
     Route: 065
     Dates: start: 200106
  9. METHOTREXATE. [Suspect]
     Active Substance: METHOTREXATE
     Indication: RHEUMATOID ARTHRITIS
     Route: 065

REACTIONS (2)
  - Arthritis infective [Unknown]
  - Device related sepsis [Recovered/Resolved]

NARRATIVE: CASE EVENT DATE: 20160503
